FAERS Safety Report 13957155 (Version 15)
Quarter: 2025Q2

REPORT INFORMATION
  Report Type: Spontaneous
  Country: US (occurrence: US)
  Receive Date: 20170911
  Receipt Date: 20250407
  Transmission Date: 20250716
  Serious: Yes (Hospitalization, Other)
  Sender: PFIZER
  Company Number: US-PFIZER INC-2017388761

PATIENT
  Age: 76 Year
  Sex: Female
  Weight: 86 kg

DRUGS (23)
  1. XELJANZ XR [Suspect]
     Active Substance: TOFACITINIB CITRATE
     Indication: Rheumatoid arthritis
     Dosage: 11 MG, DAILY
     Route: 048
     Dates: start: 2015
  2. XELJANZ XR [Suspect]
     Active Substance: TOFACITINIB CITRATE
     Dosage: 11 MG, 1X/DAY
     Route: 048
     Dates: start: 2016, end: 2017
  3. XELJANZ XR [Suspect]
     Active Substance: TOFACITINIB CITRATE
     Dosage: 11 MG, 1X/DAY
     Route: 048
     Dates: start: 2016, end: 20180227
  4. XELJANZ XR [Suspect]
     Active Substance: TOFACITINIB CITRATE
     Route: 048
     Dates: start: 201604
  5. XELJANZ XR [Suspect]
     Active Substance: TOFACITINIB CITRATE
     Dosage: 11 MG, 1X/DAY
     Route: 048
  6. XELJANZ XR [Suspect]
     Active Substance: TOFACITINIB CITRATE
     Dosage: 11 MG, 1X/DAY
     Route: 048
     Dates: end: 201912
  7. XELJANZ XR [Suspect]
     Active Substance: TOFACITINIB CITRATE
     Dosage: 11 MG, 1X/DAY
     Route: 048
     Dates: start: 20200324
  8. ALPRAZOLAM [Concomitant]
     Active Substance: ALPRAZOLAM
     Dates: start: 1990
  9. ZANTAC [Concomitant]
     Active Substance: RANITIDINE HYDROCHLORIDE
     Dates: start: 1990
  10. OMEPRAZOLE [Concomitant]
     Active Substance: OMEPRAZOLE
     Dates: start: 1980
  11. CLONAZEPAM [Concomitant]
     Active Substance: CLONAZEPAM
  12. GABAPENTIN [Concomitant]
     Active Substance: GABAPENTIN
  13. HYDROCODONE [Concomitant]
     Active Substance: HYDROCODONE
     Dates: start: 2015
  14. OMEGA-3 FATTY ACIDS [Concomitant]
     Active Substance: OMEGA-3 FATTY ACIDS
     Dosage: 1 DF, 1X/DAY (ONE GEL CAPSULE BY MOUTH ONCE A DAY)
     Route: 048
  15. CALTRATE 600 +D PLUS [Concomitant]
     Indication: Bone disorder
     Dosage: 1 DF, 1X/DAY (ONE TABLET BY MOUTH A DAY)
     Route: 048
  16. MINERALS\VITAMINS [Concomitant]
     Active Substance: MINERALS\VITAMINS
     Dosage: 1 DF, 1X/DAY (ONE TABLET BY MOUTH ONCE A DAY)
     Route: 048
  17. NAPROXEN [Concomitant]
     Active Substance: NAPROXEN
     Indication: Osteoarthritis
  18. VALTREX [Concomitant]
     Active Substance: VALACYCLOVIR HYDROCHLORIDE
  19. ADVAIR HFA [Concomitant]
     Active Substance: FLUTICASONE PROPIONATE\SALMETEROL XINAFOATE
  20. SPIRONOLACTONE [Concomitant]
     Active Substance: SPIRONOLACTONE
  21. FUROSEMIDE [Concomitant]
     Active Substance: FUROSEMIDE
  22. ASPIRIN [Concomitant]
     Active Substance: ASPIRIN
  23. FOLIC ACID [Concomitant]
     Active Substance: FOLIC ACID

REACTIONS (11)
  - Lung neoplasm malignant [Unknown]
  - Spinal operation [Recovering/Resolving]
  - Knee arthroplasty [Recovering/Resolving]
  - Thrombosis [Unknown]
  - Body height decreased [Unknown]
  - Pain [Unknown]
  - Dermatitis [Not Recovered/Not Resolved]
  - Lymphoedema [Unknown]
  - Illness [Unknown]
  - Condition aggravated [Unknown]
  - Road traffic accident [Unknown]

NARRATIVE: CASE EVENT DATE: 20170801
